FAERS Safety Report 20323035 (Version 1)
Quarter: 2022Q1

REPORT INFORMATION
  Report Type: Spontaneous
  Country: US (occurrence: None)
  Receive Date: 20220111
  Receipt Date: 20220111
  Transmission Date: 20220423
  Serious: Yes (unspecified)
  Sender: FDA-Public Use
  Company Number: None

PATIENT
  Age: 36 Year
  Sex: Female
  Weight: 78 kg

DRUGS (4)
  1. REGEN-COV [Suspect]
     Active Substance: CASIRIVIMAB\IMDEVIMAB
     Indication: COVID-19
     Dosage: OTHER FREQUENCY : ONCE;?
     Route: 041
     Dates: start: 20211230, end: 20211230
  2. diphenhydramine 50 mg [Concomitant]
     Dates: start: 20211230, end: 20211230
  3. epinephrine 0.3 mg [Concomitant]
     Dates: start: 20211230, end: 20211230
  4. methylprednisolone 125 mg [Concomitant]
     Dates: start: 20211230, end: 20211230

REACTIONS (4)
  - Dyspnoea [None]
  - Chest pain [None]
  - Rash [None]
  - Infusion related reaction [None]

NARRATIVE: CASE EVENT DATE: 20211230
